FAERS Safety Report 16166982 (Version 1)
Quarter: 2019Q2

REPORT INFORMATION
  Report Type: Spontaneous
  Country: DE (occurrence: DE)
  Receive Date: 20190408
  Receipt Date: 20190408
  Transmission Date: 20190711
  Serious: Yes (Other)
  Sender: FDA-Public Use
  Company Number: DE-ACCORD-118983

PATIENT
  Sex: Female

DRUGS (1)
  1. QUETIAPINE. [Suspect]
     Active Substance: QUETIAPINE
     Indication: PRODUCT USED FOR UNKNOWN INDICATION
     Dosage: TAKING 600 MG QUETIAPINE / DAY IN THE 16.6 WEEKS
     Route: 048

REACTIONS (2)
  - Maternal exposure during pregnancy [Unknown]
  - Abortion missed [Unknown]

NARRATIVE: CASE EVENT DATE: 20180804
